FAERS Safety Report 8420074-0 (Version None)
Quarter: 2012Q2

REPORT INFORMATION
  Report Type: 
  Country: None (occurrence: None)
  Receive Date: 20120607
  Receipt Date: 20120604
  Transmission Date: 20120825
  Serious: Yes (Other)
  Sender: FDA-Public Use
  Company Number: US-AMGEN-USASP2012016258

PATIENT
  Sex: Female
  Weight: 70.748 kg

DRUGS (3)
  1. PLAQUENIL [Suspect]
     Indication: CONNECTIVE TISSUE DISORDER
     Dosage: 200 MG, BID
     Route: 048
  2. EPOGEN [Suspect]
     Indication: ANAEMIA
     Dosage: 40000 UNIT, UNK
     Route: 058
     Dates: start: 20051123, end: 20120306
  3. PLAQUENIL [Concomitant]
     Dosage: 200 MG, BID
     Route: 048

REACTIONS (2)
  - THERAPEUTIC RESPONSE DECREASED [None]
  - BONE MARROW FAILURE [None]
